FAERS Safety Report 5118608-7 (Version None)
Quarter: 2006Q4

REPORT INFORMATION
  Report Type: 
  Country: None (occurrence: None)
  Receive Date: 20061002
  Receipt Date: 20060928
  Transmission Date: 20070319
  Serious: Yes (Other)
  Sender: FDA-Public Use
  Company Number: US-GLAXOSMITHKLINE-A0621791A

PATIENT
  Age: 65 Year
  Sex: Female

DRUGS (7)
  1. REQUIP [Suspect]
     Indication: RESTLESS LEGS SYNDROME
     Dosage: .5MG PER DAY
     Route: 048
     Dates: start: 20060401, end: 20060921
  2. PREVACID [Concomitant]
  3. THYROID TAB [Concomitant]
  4. ALLEGRA [Concomitant]
  5. ZIAC [Concomitant]
  6. SINGULAIR [Concomitant]
  7. PULMICORT [Concomitant]

REACTIONS (3)
  - ABDOMINAL PAIN UPPER [None]
  - CONSTIPATION [None]
  - INTESTINAL OBSTRUCTION [None]
